FAERS Safety Report 20070913 (Version 2)
Quarter: 2022Q1

REPORT INFORMATION
  Report Type: Report from Study
  Country: US (occurrence: US)
  Receive Date: 20211115
  Receipt Date: 20220120
  Transmission Date: 20220424
  Serious: Yes (Death, Hospitalization)
  Sender: FDA-Public Use
  Company Number: US-EXELIXIS-CABO-21046094

PATIENT
  Age: 38 Year
  Sex: Female
  Weight: 72.562 kg

DRUGS (8)
  1. CABOMETYX [Suspect]
     Active Substance: CABOZANTINIB S-MALATE
     Indication: Renal cancer
     Dosage: 40 MG, QD
     Route: 048
     Dates: start: 20210407
  2. CABOMETYX [Suspect]
     Active Substance: CABOZANTINIB S-MALATE
     Dosage: UNK
     Route: 048
  3. IMODIUM A-D [Concomitant]
     Active Substance: LOPERAMIDE HYDROCHLORIDE
     Dosage: UNK
  4. LEVOTHYROXINE SODIUM [Concomitant]
     Active Substance: LEVOTHYROXINE SODIUM
     Dosage: UNK
  5. TYLENOL [Concomitant]
     Active Substance: ACETAMINOPHEN
     Dosage: UNK
  6. Fluarix quad [Concomitant]
     Dosage: UNK
  7. LENVIMA [Concomitant]
     Active Substance: LENVATINIB
     Dosage: UNK
  8. AFINITOR [Concomitant]
     Active Substance: EVEROLIMUS
     Dosage: UNK

REACTIONS (3)
  - Arterial occlusive disease [Unknown]
  - Death [Fatal]
  - Cancer pain [Unknown]

NARRATIVE: CASE EVENT DATE: 20220114
